FAERS Safety Report 16408874 (Version 16)
Quarter: 2024Q4

REPORT INFORMATION
  Report Type: Report from Study
  Country: CA (occurrence: CA)
  Receive Date: 20190610
  Receipt Date: 20241016
  Transmission Date: 20250115
  Serious: Yes (Other)
  Sender: ROCHE
  Company Number: CA-ROCHE-2124747

PATIENT
  Age: 30 Year
  Sex: Female

DRUGS (11)
  1. OCREVUS [Suspect]
     Active Substance: OCRELIZUMAB
     Indication: Relapsing-remitting multiple sclerosis
     Dosage: 300 MG DAY 0 AND 14, THEN 600 MG Q 6 MONTHS?300 MG IN 250 ML NORMAL SALINE?LAST INFUSION: 28/MAY/201
     Route: 042
     Dates: start: 20180508
  2. OCREVUS [Suspect]
     Active Substance: OCRELIZUMAB
     Dosage: AS PER PROTOCOL, 300MG IN 10ML X 2 VIALS
     Route: 042
     Dates: start: 20180515
  3. OCREVUS [Suspect]
     Active Substance: OCRELIZUMAB
     Dosage: 600MG IN N/S 500ML
     Route: 042
     Dates: start: 20200514
  4. OCREVUS [Suspect]
     Active Substance: OCRELIZUMAB
     Dosage: 600 MG EVERY 6 MONTH
     Route: 042
  5. OCREVUS [Suspect]
     Active Substance: OCRELIZUMAB
     Route: 042
  6. OCREVUS [Suspect]
     Active Substance: OCRELIZUMAB
     Route: 042
  7. BENADRYL [Suspect]
     Active Substance: DIPHENHYDRAMINE HYDROCHLORIDE
     Indication: Product used for unknown indication
     Route: 065
  8. GABAPENTIN [Concomitant]
     Active Substance: GABAPENTIN
  9. SODIUM CHLORIDE [Concomitant]
     Active Substance: SODIUM CHLORIDE
  10. BACLOFEN [Concomitant]
     Active Substance: BACLOFEN
     Indication: Muscle spasticity
  11. VYVANSE [Concomitant]
     Active Substance: LISDEXAMFETAMINE DIMESYLATE
     Dates: start: 20230422

REACTIONS (37)
  - Fatigue [Not Recovered/Not Resolved]
  - Migraine [Recovering/Resolving]
  - Cough [Not Recovered/Not Resolved]
  - Headache [Recovered/Resolved]
  - Stress [Not Recovered/Not Resolved]
  - Neuralgia [Recovered/Resolved]
  - Depression [Not Recovered/Not Resolved]
  - Anxiety [Unknown]
  - Flushing [Unknown]
  - Throat irritation [Recovering/Resolving]
  - Alopecia [Not Recovered/Not Resolved]
  - Fatigue [Not Recovered/Not Resolved]
  - Cough [Not Recovered/Not Resolved]
  - Infusion related reaction [Recovered/Resolved]
  - Heart rate increased [Recovered/Resolved]
  - Muscle spasms [Recovered/Resolved]
  - Band sensation [Recovered/Resolved]
  - Cough [Not Recovered/Not Resolved]
  - Abdominal pain lower [Unknown]
  - Dysuria [Recovered/Resolved]
  - Urine abnormality [Recovered/Resolved]
  - Stress [Not Recovered/Not Resolved]
  - Alopecia [Not Recovered/Not Resolved]
  - Urinary tract infection [Not Recovered/Not Resolved]
  - Eczema [Not Recovered/Not Resolved]
  - Muscular weakness [Not Recovered/Not Resolved]
  - Hypoaesthesia [Not Recovered/Not Resolved]
  - Depression [Not Recovered/Not Resolved]
  - Infusion related reaction [Recovered/Resolved]
  - Somnolence [Not Recovered/Not Resolved]
  - Memory impairment [Unknown]
  - Throat irritation [Not Recovered/Not Resolved]
  - Attention deficit hyperactivity disorder [Unknown]
  - Pneumonia bacterial [Recovered/Resolved]
  - COVID-19 [Recovered/Resolved]
  - Somnolence [Unknown]
  - Memory impairment [Unknown]

NARRATIVE: CASE EVENT DATE: 20180508
